FAERS Safety Report 8499372-0 (Version None)
Quarter: 2012Q3

REPORT INFORMATION
  Report Type: 
  Country: None (occurrence: None)
  Receive Date: 20120710
  Receipt Date: 20120625
  Transmission Date: 20120928
  Serious: Yes (Life-Threatening, Hospitalization, Disabling, Other)
  Sender: FDA-Public Use
  Company Number: JP-MPIJNJ-2012-02470

PATIENT

DRUGS (2)
  1. VELCADE [Suspect]
     Indication: MULTIPLE MYELOMA
     Dosage: 1 MG/M2, UNK
     Route: 042
     Dates: start: 20120319, end: 20120326
  2. DEXAMETHASONE [Concomitant]
     Indication: MULTIPLE MYELOMA
     Dosage: 20 MG, QD
     Route: 042
     Dates: start: 20120316

REACTIONS (7)
  - INTERSTITIAL LUNG DISEASE [None]
  - HAEMORRHAGE [None]
  - BLOOD PRESSURE DECREASED [None]
  - OESOPHAGEAL ULCER [None]
  - CYTOMEGALOVIRUS OESOPHAGITIS [None]
  - ATELECTASIS [None]
  - PLEURAL EFFUSION [None]
